FAERS Safety Report 19718285 (Version 2)
Quarter: 2021Q3

REPORT INFORMATION
  Report Type: Spontaneous
  Country: US (occurrence: US)
  Receive Date: 20210818
  Receipt Date: 20210907
  Transmission Date: 20211014
  Serious: No
  Sender: FDA-Public Use
  Company Number: US-PFIZER INC-202100917265

PATIENT
  Age: 69 Year
  Sex: Female

DRUGS (1)
  1. METOCLOPRAMIDE HCL [Suspect]
     Active Substance: METOCLOPRAMIDE HYDROCHLORIDE
     Dosage: UNK

REACTIONS (4)
  - Fall [Unknown]
  - Pain [Unknown]
  - Hypoacusis [Unknown]
  - Tremor [Unknown]
